FAERS Safety Report 8100324-0 (Version None)
Quarter: 2012Q1

REPORT INFORMATION
  Report Type: 
  Country: None (occurrence: None)
  Receive Date: 20120126
  Receipt Date: 20120120
  Transmission Date: 20120608
  Serious: Yes (Disabling, Other)
  Sender: FDA-Public Use
  Company Number: DSM-2012-00047

PATIENT
  Age: 56 Year
  Sex: Male

DRUGS (6)
  1. SIMVASTATIN [Concomitant]
  2. SEVIKAR (OLMESARTAN MEDOXOMIL, AMLODIPINE BESILATE) (TABLET) (OLMESART [Suspect]
     Indication: HYPERTENSION
     Dosage: 40/10MG, ORAL
     Route: 048
     Dates: start: 20111122, end: 20120111
  3. HYPREN (RAMIPIRIL (RAMIPIRIL) [Concomitant]
  4. THROMBO ASS (ACETYLSALICYLIC ACID)  (ACETYLSALICYLIC ACID) [Concomitant]
  5. PROCORALAN (IVABRADINE HYDROCHLORIDE) (IVABRADINE HYDROCHLORIDE) [Concomitant]
  6. TREDAPTIVE (NICOTINIC ACID, LAROPIPRANT) (NICOTINIC ACID, LAROPIPRANT) [Concomitant]

REACTIONS (1)
  - DERMATITIS ALLERGIC [None]
